FAERS Safety Report 5646847-5 (Version None)
Quarter: 2008Q1

REPORT INFORMATION
  Report Type: 
  Country: None (occurrence: None)
  Receive Date: 20080229
  Receipt Date: 20080229
  Transmission Date: 20080703
  Serious: No
  Sender: FDA-Public Use
  Company Number: None

PATIENT
  Sex: Male
  Weight: 92.5338 kg

DRUGS (1)
  1. OXYCONTIN [Suspect]
     Indication: PAIN
     Dosage: 80 MG QID MOUTH 2 1/2 YRS
     Route: 048

REACTIONS (6)
  - CHEST DISCOMFORT [None]
  - DERMATITIS ALLERGIC [None]
  - DRUG HYPERSENSITIVITY [None]
  - DYSPNOEA [None]
  - FATIGUE [None]
  - INSOMNIA [None]
